FAERS Safety Report 15461011 (Version 1)
Quarter: 2018Q4

REPORT INFORMATION
  Report Type: Spontaneous
  Country: US (occurrence: US)
  Receive Date: 20181003
  Receipt Date: 20181003
  Transmission Date: 20190204
  Serious: No
  Sender: FDA-Public Use
  Company Number: US-PERRIGO-18US007541

PATIENT
  Age: 81 Year
  Sex: Female
  Weight: 49.89 kg

DRUGS (1)
  1. IMIQUIMOD. [Suspect]
     Active Substance: IMIQUIMOD
     Indication: ACTINIC KERATOSIS
     Dosage: SMALL AMOUNT, TWICE
     Route: 061
     Dates: start: 201806, end: 201806

REACTIONS (5)
  - Application site scar [Not Recovered/Not Resolved]
  - Skin injury [Recovered/Resolved]
  - Application site erythema [Not Recovered/Not Resolved]
  - Application site scab [Recovered/Resolved]
  - Bloody discharge [Recovered/Resolved]

NARRATIVE: CASE EVENT DATE: 201806
